FAERS Safety Report 6332613-4 (Version None)
Quarter: 2009Q3

REPORT INFORMATION
  Report Type: 
  Country: None (occurrence: None)
  Receive Date: 20090828
  Receipt Date: 20090824
  Transmission Date: 20100115
  Serious: Yes (Death, Life-Threatening, Hospitalization)
  Sender: FDA-Public Use
  Company Number: IN-ROCHE-632073

PATIENT
  Sex: Male
  Weight: 56 kg

DRUGS (2)
  1. INTERFERON ALFA-2A [Suspect]
     Route: 058
     Dates: start: 20081114, end: 20090429
  2. BEVACIZUMAB [Suspect]
     Route: 042
     Dates: start: 20081114, end: 20090429

REACTIONS (2)
  - ABSCESS [None]
  - SEPSIS [None]
